FAERS Safety Report 6036339-6 (Version None)
Quarter: 2009Q1

REPORT INFORMATION
  Report Type: 
  Country: None (occurrence: None)
  Receive Date: 20090113
  Receipt Date: 20081216
  Transmission Date: 20090719
  Serious: No
  Sender: FDA-Public Use
  Company Number: FR-ABBOTT-08P-056-0493747-00

PATIENT
  Age: 80 Year
  Sex: Female

DRUGS (7)
  1. NAXY TABLETS [Suspect]
     Indication: HELICOBACTER INFECTION
     Route: 048
     Dates: start: 20081203, end: 20081204
  2. SECTRAL [Concomitant]
     Indication: VENTRICULAR HYPERTROPHY
     Dates: start: 20031001
  3. VALSARTAN AND HYDROCHLOROTHIAZIDE [Concomitant]
     Indication: DRUG USE FOR UNKNOWN INDICATION
     Dates: start: 20041001
  4. LERCAN [Concomitant]
     Indication: HYPERTENSION
     Dates: start: 20020401
  5. DESLORATADINE [Concomitant]
     Indication: ALLERGIC COUGH
     Dates: start: 20050401
  6. PANTOPRAZOLE SODIUM [Concomitant]
     Indication: GASTRITIS
     Dates: start: 20080901
  7. ATROVASTATINE [Concomitant]
     Indication: DRUG USE FOR UNKNOWN INDICATION
     Route: 048
     Dates: start: 20081203

REACTIONS (4)
  - ASTHENIA [None]
  - HOT FLUSH [None]
  - MALAISE [None]
  - TACHYARRHYTHMIA [None]
